FAERS Safety Report 8358676-2 (Version None)
Quarter: 2012Q2

REPORT INFORMATION
  Report Type: 
  Country: None (occurrence: None)
  Receive Date: 20120514
  Receipt Date: 20120507
  Transmission Date: 20120825
  Serious: Yes (Life-Threatening)
  Sender: FDA-Public Use
  Company Number: JP-MERCK-1204USA01841

PATIENT
  Age: 74 Year
  Sex: Male

DRUGS (3)
  1. EMEND [Suspect]
     Route: 048
     Dates: start: 20120406, end: 20120406
  2. OXALIPLATIN [Concomitant]
     Route: 065
     Dates: start: 20120406, end: 20120406
  3. EMEND [Suspect]
     Indication: PROPHYLAXIS OF NAUSEA AND VOMITING
     Route: 048
     Dates: start: 20120406, end: 20120406

REACTIONS (1)
  - CARDIAC ARREST [None]
